FAERS Safety Report 16348968 (Version 1)
Quarter: 2019Q2

REPORT INFORMATION
  Report Type: Spontaneous
  Country: US (occurrence: US)
  Receive Date: 20190523
  Receipt Date: 20190523
  Transmission Date: 20190711
  Serious: Yes (Hospitalization)
  Sender: FDA-Public Use
  Company Number: US-ASTRAZENECA-2019SE75035

PATIENT
  Age: 22098 Day
  Sex: Female
  Weight: 93 kg

DRUGS (2)
  1. METFORMIN [Concomitant]
     Active Substance: METFORMIN HYDROCHLORIDE
     Indication: DIABETES MELLITUS
     Route: 048
     Dates: start: 2016
  2. QTERN [Suspect]
     Active Substance: DAPAGLIFLOZIN\SAXAGLIPTIN HYDROCHLORIDE
     Indication: TYPE 2 DIABETES MELLITUS
     Dosage: 10-5 MG ONCE A DAY
     Route: 048
     Dates: start: 201812

REACTIONS (8)
  - Coma [Recovered/Resolved]
  - Decreased appetite [Recovered/Resolved]
  - Ketoacidosis [Recovered/Resolved with Sequelae]
  - Blood potassium abnormal [Recovered/Resolved]
  - Blood glucose decreased [Not Recovered/Not Resolved]
  - Dehydration [Recovered/Resolved]
  - Visual impairment [Not Recovered/Not Resolved]
  - Blood glucose increased [Recovered/Resolved]

NARRATIVE: CASE EVENT DATE: 201904
